FAERS Safety Report 24571636 (Version 1)
Quarter: 2024Q4

REPORT INFORMATION
  Report Type: Spontaneous
  Country: MX (occurrence: MX)
  Receive Date: 20241101
  Receipt Date: 20241101
  Transmission Date: 20250114
  Serious: Yes (Hospitalization, Other)
  Sender: BAXTER
  Company Number: MX-MLMSERVICE-20241021-PI231829-00198-1

PATIENT
  Age: 26 Year
  Sex: Female

DRUGS (5)
  1. LEVOFLOXACIN [Suspect]
     Active Substance: LEVOFLOXACIN
     Indication: Upper respiratory tract infection
     Dosage: 500 MG DAILY FOR FIVE DAYS
     Route: 065
  2. FUROSEMIDE [Concomitant]
     Active Substance: FUROSEMIDE
     Indication: Hypochromic anaemia
     Route: 065
  3. IRON [Concomitant]
     Active Substance: IRON
     Indication: Hypochromic anaemia
     Route: 065
  4. FOLIC ACID [Concomitant]
     Active Substance: FOLIC ACID
     Indication: Hypochromic anaemia
     Route: 065
  5. ERYTHROPOIETIN [Concomitant]
     Active Substance: ERYTHROPOIETIN
     Indication: Hypochromic anaemia
     Route: 065

REACTIONS (17)
  - Cutaneous vasculitis [Recovered/Resolved]
  - Henoch-Schonlein purpura [Recovered/Resolved]
  - Odynophagia [Recovered/Resolved]
  - Asthenia [Recovered/Resolved]
  - Abdominal pain [Recovered/Resolved]
  - Macule [Recovered/Resolved]
  - Skin burning sensation [Recovered/Resolved]
  - Rash [Recovered/Resolved]
  - Skin lesion [Recovered/Resolved]
  - Arthralgia [Recovered/Resolved]
  - Hyponatraemia [Recovered/Resolved]
  - Thrombocytosis [Recovered/Resolved]
  - Palpable purpura [Recovered/Resolved]
  - Oedema peripheral [Recovered/Resolved]
  - Renal disorder [Recovered/Resolved]
  - Oliguria [Recovered/Resolved]
  - Vasculitis necrotising [Recovered/Resolved]
